FAERS Safety Report 9636357 (Version 1)
Quarter: 2013Q4

REPORT INFORMATION
  Report Type: Report from Study
  Country: CA (occurrence: IT)
  Receive Date: 20131021
  Receipt Date: 20131021
  Transmission Date: 20140711
  Serious: Yes (Other)
  Sender: FDA-Public Use
  Company Number: IT-B.I. PHARMACEUTICALS,INC./RIDGEFIELD-2013-BI-33176GD

PATIENT
  Sex: Female

DRUGS (2)
  1. PRAMIPEXOLE [Suspect]
     Indication: PARKINSON^S DISEASE
     Dosage: 3 MG
  2. LEVODOPA [Suspect]
     Indication: PARKINSON^S DISEASE
     Dosage: 400 MG

REACTIONS (2)
  - Pleurothotonus [Not Recovered/Not Resolved]
  - Muscle atrophy [Unknown]
